FAERS Safety Report 11808099 (Version 1)
Quarter: 2015Q4

REPORT INFORMATION
  Report Type: Spontaneous
  Country: US (occurrence: US)
  Receive Date: 20151207
  Receipt Date: 20151207
  Transmission Date: 20160305
  Serious: No
  Sender: FDA-Public Use
  Company Number: US-B.I. PHARMACEUTICALS,INC./RIDGEFIELD-2015-BI-66387BP

PATIENT
  Age: 70 Year
  Sex: Female
  Weight: 70 kg

DRUGS (8)
  1. DEPAKOTE ER [Concomitant]
     Active Substance: DIVALPROEX SODIUM
     Indication: MIGRAINE
     Dosage: 500 MG
     Route: 048
     Dates: start: 1998
  2. GALANTAMINE. [Concomitant]
     Active Substance: GALANTAMINE
     Indication: MIGRAINE
     Dosage: 8 MG
     Route: 048
     Dates: start: 1998
  3. SPIRIVA [Suspect]
     Active Substance: TIOTROPIUM BROMIDE MONOHYDRATE
     Indication: CHRONIC OBSTRUCTIVE PULMONARY DISEASE
     Dosage: 5 MCG
     Route: 055
     Dates: start: 20151028
  4. TOPAMAX [Concomitant]
     Active Substance: TOPIRAMATE
     Indication: MIGRAINE
     Dosage: 100 MG
     Route: 048
     Dates: start: 1998
  5. ATIVAN [Concomitant]
     Active Substance: LORAZEPAM
     Indication: MIGRAINE
     Dosage: 1 MG
     Route: 048
     Dates: start: 1998
  6. COUMADIN [Concomitant]
     Active Substance: WARFARIN SODIUM
     Indication: THROMBOSIS
     Dosage: 2.8571 MG
     Route: 048
     Dates: start: 2013
  7. COUMADIN [Concomitant]
     Active Substance: WARFARIN SODIUM
     Dosage: DOSE PER APPLICATION: 7.5 MG; FORMULATION: TABLET
     Route: 048
  8. XOPENEX HFA [Concomitant]
     Active Substance: LEVALBUTEROL TARTRATE
     Indication: ASTHMA
     Route: 055

REACTIONS (1)
  - Dyspnoea [Recovered/Resolved]

NARRATIVE: CASE EVENT DATE: 20151121
